FAERS Safety Report 7641802-8 (Version None)
Quarter: 2011Q3

REPORT INFORMATION
  Report Type: 
  Country: None (occurrence: None)
  Receive Date: 20110728
  Receipt Date: 20110713
  Transmission Date: 20111222
  Serious: Yes (Hospitalization)
  Sender: FDA-Public Use
  Company Number: US-ROCHE-775528

PATIENT
  Sex: Female
  Weight: 79.8 kg

DRUGS (19)
  1. BEVACIZUMAB [Suspect]
     Dosage: DAY 1 EVERY 21 DAYS
     Route: 042
     Dates: start: 20090708, end: 20110302
  2. DOCETAXEL [Suspect]
     Indication: NON-SMALL CELL LUNG CANCER
     Route: 065
  3. LASIX [Concomitant]
     Dates: start: 20020101
  4. BEVACIZUMAB [Suspect]
     Indication: NON-SMALL CELL LUNG CANCER
     Dosage: DAY 1 EVERY 21 DAY
     Route: 042
     Dates: start: 20090416, end: 20090617
  5. PEMETREXED [Suspect]
     Indication: NON-SMALL CELL LUNG CANCER
     Dosage: DAY 1 EVERY 21 DAYS
     Route: 042
     Dates: start: 20090416, end: 20090617
  6. PEMETREXED [Suspect]
     Dosage: DAY 1 EVERY 21 DAYS
     Route: 042
     Dates: start: 20090708, end: 20110302
  7. VITAMIN B-12 [Concomitant]
     Dates: start: 20090401
  8. PLAVIX [Concomitant]
     Dates: start: 20081201
  9. IMDUR [Concomitant]
     Dates: start: 20080109
  10. LISINOPRIL [Concomitant]
     Dates: start: 20020101
  11. MAGNESIUM OXIDE [Concomitant]
     Dates: start: 20100928
  12. NITROGLYCERIN [Concomitant]
     Dates: start: 20070507
  13. LOPRESSOR [Concomitant]
     Dates: start: 20081201
  14. TRAVATAN [Concomitant]
     Dates: start: 20091109
  15. CARBOPLATIN [Suspect]
     Indication: NON-SMALL CELL LUNG CANCER
     Dosage: 6 AUC DAY 1 EVERY 21 DAYS
     Route: 042
     Dates: start: 20090416, end: 20090617
  16. FOLIC ACID [Concomitant]
     Dates: start: 20090401
  17. LIPITOR [Concomitant]
     Dates: start: 20080819
  18. PRILOSEC [Concomitant]
     Dates: start: 20081223
  19. ZETIA [Concomitant]
     Dates: start: 20080911

REACTIONS (2)
  - HYPOKALAEMIA [None]
  - HYPOCALCAEMIA [None]
